FAERS Safety Report 16121413 (Version 1)
Quarter: 2019Q1

REPORT INFORMATION
  Report Type: Spontaneous
  Country: FR (occurrence: FR)
  Receive Date: 20190327
  Receipt Date: 20190327
  Transmission Date: 20190418
  Serious: Yes (Other)
  Sender: FDA-Public Use
  Company Number: FR-TEVA-2019-FR-1029171

PATIENT
  Age: 76 Year
  Sex: Male

DRUGS (1)
  1. GALANTAMINE BASE [Suspect]
     Active Substance: GALANTAMINE
     Indication: DEMENTIA WITH LEWY BODIES
     Route: 048

REACTIONS (4)
  - Confusional state [Recovered/Resolved]
  - Hallucination, visual [Recovered/Resolved]
  - Condition aggravated [Recovered/Resolved]
  - Abnormal behaviour [Recovered/Resolved]
